FAERS Safety Report 5423131-6 (Version None)
Quarter: 2007Q3

REPORT INFORMATION
  Report Type: 
  Country: None (occurrence: None)
  Receive Date: 20070821
  Receipt Date: 20070808
  Transmission Date: 20080115
  Serious: Yes (Hospitalization)
  Sender: FDA-Public Use
  Company Number: RENA-12207

PATIENT
  Age: 42 Year
  Sex: Male

DRUGS (3)
  1. RENAGEL [Suspect]
     Indication: DIALYSIS
     Dosage: 0.8 G TID PO
     Route: 048
     Dates: start: 20070331
  2. RENAGEL [Suspect]
     Indication: HYPERPHOSPHATAEMIA
     Dosage: 0.8 G TID PO
     Route: 048
     Dates: start: 20070331
  3. WARFARIN SODIUM [Concomitant]

REACTIONS (5)
  - CONTUSION [None]
  - DRUG INTERACTION [None]
  - HAEMATURIA [None]
  - INTERNATIONAL NORMALISED RATIO INCREASED [None]
  - MELAENA [None]
